FAERS Safety Report 4369355-0 (Version None)
Quarter: 2004Q2

REPORT INFORMATION
  Report Type: 
  Country: None (occurrence: None)
  Receive Date: 20040527
  Receipt Date: 20040518
  Transmission Date: 20050107
  Serious: Yes (Other)
  Sender: FDA-Public Use
  Company Number: US-JNJFOC-20040201169

PATIENT
  Age: 67 Year
  Sex: Female

DRUGS (3)
  1. DURAGESIC [Suspect]
     Indication: PAIN
     Dosage: 50 G/HR, 1 IN 72 HOUR, TRANSDERMAL
     Route: 062
     Dates: start: 20030501
  2. THYROID MEDICATION (THYROID HORMONES [Concomitant]
  3. ATENOLOL [Concomitant]

REACTIONS (3)
  - ALOPECIA [None]
  - INFECTION [None]
  - INTESTINAL PERFORATION [None]
